FAERS Safety Report 5723083-5 (Version None)
Quarter: 2008Q2

REPORT INFORMATION
  Report Type: 
  Country: None (occurrence: None)
  Receive Date: 20080430
  Receipt Date: 20080418
  Transmission Date: 20081010
  Serious: Yes (Hospitalization)
  Sender: FDA-Public Use
  Company Number: US-JNJFOC-20080405285

PATIENT
  Sex: Female
  Weight: 154.22 kg

DRUGS (8)
  1. FENTANYL TRANSDERMAL SYSTEM [Suspect]
     Route: 062
  2. FENTANYL TRANSDERMAL SYSTEM [Suspect]
     Indication: CHEST PAIN
     Route: 062
  3. FENTANYL TRANSDERMAL SYSTEM [Suspect]
     Indication: CHEST PAIN
     Route: 062
  4. CHOLESTEROL MEDICATION [Suspect]
     Indication: BLOOD CHOLESTEROL
     Route: 048
  5. LISINOPRIL [Concomitant]
     Indication: HYPERTENSION
     Route: 048
  6. TRACLEER [Concomitant]
     Indication: PULMONARY HYPERTENSION
     Route: 048
  7. COUMADIN [Concomitant]
     Indication: THROMBOSIS
     Route: 048
  8. OXYGEN [Concomitant]
     Indication: PULMONARY HYPERTENSION
     Route: 045

REACTIONS (3)
  - PULMONARY HYPERTENSION [None]
  - RHABDOMYOLYSIS [None]
  - THROMBOSIS IN DEVICE [None]
